FAERS Safety Report 13969771 (Version 1)
Quarter: 2017Q3

REPORT INFORMATION
  Report Type: Spontaneous
  Country: IT (occurrence: IT)
  Receive Date: 20170914
  Receipt Date: 20170914
  Transmission Date: 20171128
  Serious: Yes (Other)
  Sender: FDA-Public Use
  Company Number: IT-PFIZER INC-2017387586

PATIENT
  Age: 36 Year
  Sex: Female

DRUGS (3)
  1. TAVOR (LORAZEPAM) [Suspect]
     Active Substance: LORAZEPAM
     Dosage: 7.5 MG, TOTAL
     Route: 048
     Dates: start: 20170711, end: 20170711
  2. PALIPERIDONE. [Suspect]
     Active Substance: PALIPERIDONE
     Dosage: 36 MG, TOTAL
     Route: 048
     Dates: start: 20170711, end: 20170711
  3. VENLAFAXINE [Concomitant]
     Active Substance: VENLAFAXINE HYDROCHLORIDE
     Dosage: 187.5 MG, UNK
     Route: 048
     Dates: start: 20160101

REACTIONS (3)
  - Bradyphrenia [Unknown]
  - Overdose [Unknown]
  - Drug abuse [Unknown]

NARRATIVE: CASE EVENT DATE: 20170711
